FAERS Safety Report 10220656 (Version 1)
Quarter: 2014Q2

REPORT INFORMATION
  Report Type: Spontaneous
  Country: US (occurrence: None)
  Receive Date: 20140605
  Receipt Date: 20140605
  Transmission Date: 20141212
  Serious: No
  Sender: FDA-Public Use
  Company Number: None

PATIENT
  Age: 59 Year
  Sex: Female
  Weight: 90.27 kg

DRUGS (2)
  1. METOPROLOL ER 100 MG WOCKHARDT [Suspect]
     Indication: TACHYCARDIA
     Dosage: 1 PILL EVERY 24 HOURS ONCE DAILY TAKEN BY MOUTH
     Route: 048
     Dates: start: 20140412, end: 20140602
  2. METOPROLOL ER 100 MG WOCKHARDT [Suspect]
     Indication: HYPERTENSION
     Dosage: 1 PILL EVERY 24 HOURS ONCE DAILY TAKEN BY MOUTH
     Route: 048
     Dates: start: 20140412, end: 20140602

REACTIONS (3)
  - Drug ineffective [None]
  - Heart rate increased [None]
  - Paraesthesia [None]
